FAERS Safety Report 24647449 (Version 2)
Quarter: 2024Q4

REPORT INFORMATION
  Report Type: Spontaneous
  Country: JP (occurrence: JP)
  Receive Date: 20241121
  Receipt Date: 20241210
  Transmission Date: 20250114
  Serious: No
  Sender: MERCK
  Company Number: JP-MSD-M2024-47237

PATIENT
  Age: 37 Year
  Sex: Male

DRUGS (1)
  1. LAGEVRIO [Suspect]
     Active Substance: MOLNUPIRAVIR
     Indication: COVID-19 treatment
     Dosage: 800 MILLIGRAM, BID
     Route: 048

REACTIONS (2)
  - COVID-19 [Unknown]
  - Product prescribing issue [Unknown]
